FAERS Safety Report 5463078-2 (Version None)
Quarter: 2007Q3

REPORT INFORMATION
  Report Type: 
  Country: None (occurrence: None)
  Receive Date: 20070918
  Receipt Date: 20070918
  Transmission Date: 20080115
  Serious: Yes (Hospitalization)
  Sender: FDA-Public Use
  Company Number: None

PATIENT
  Age: 37 Year
  Sex: Female
  Weight: 56.6996 kg

DRUGS (2)
  1. GYNOL II ESTRA STRENGTH,  MCNEIL-PPC, INC. [Suspect]
     Indication: CONTRACEPTION
     Dosage: 150 MG NONOXYNOL-9  AS NEEDED  VAGINAL  (DURATION: CURRENT BOX SINCE EARLY AUG)
     Route: 067
  2. NEXIUM [Concomitant]

REACTIONS (3)
  - DRUG EXPOSURE DURING PREGNANCY [None]
  - ECTOPIC PREGNANCY [None]
  - FALLOPIAN TUBE PERFORATION [None]
